FAERS Safety Report 22191566 (Version 4)
Quarter: 2023Q4

REPORT INFORMATION
  Report Type: Other
  Country: US (occurrence: None)
  Receive Date: 20230410
  Receipt Date: 20231108
  Transmission Date: 20240110
  Serious: Yes (Hospitalization)
  Sender: FDA-Public Use
  Company Number: US-ROCHE-3327313

PATIENT
  Age: 51 Year
  Sex: Female
  Weight: 65.83 kg

DRUGS (9)
  1. OCREVUS [Suspect]
     Active Substance: OCRELIZUMAB
     Indication: Relapsing multiple sclerosis
     Dosage: DATE OF SERVICE 17/NOV/2022 (600MG), 300MG/10 ML
     Route: 042
     Dates: start: 20180108
  2. OCREVUS [Suspect]
     Active Substance: OCRELIZUMAB
     Indication: Relapsing-remitting multiple sclerosis
     Route: 042
     Dates: start: 20210602
  3. FAMOTIDINE [Concomitant]
     Active Substance: FAMOTIDINE
  4. MAXALT [Concomitant]
     Active Substance: RIZATRIPTAN BENZOATE
  5. DEPAKOTE [Concomitant]
     Active Substance: DIVALPROEX SODIUM
  6. PROZAC [Concomitant]
     Active Substance: FLUOXETINE HYDROCHLORIDE
  7. LISINOPRIL [Concomitant]
     Active Substance: LISINOPRIL
  8. LORATADINE [Concomitant]
     Active Substance: LORATADINE
  9. AIMOVIG [Concomitant]
     Active Substance: ERENUMAB-AOOE

REACTIONS (5)
  - COVID-19 [Recovered/Resolved]
  - Influenza [Recovered/Resolved]
  - Pneumonia [Recovered/Resolved]
  - Rash [Recovering/Resolving]
  - Decubitus ulcer [Recovered/Resolved with Sequelae]

NARRATIVE: CASE EVENT DATE: 20230101
